FAERS Safety Report 4317439-5 (Version None)
Quarter: 2004Q1

REPORT INFORMATION
  Report Type: 
  Country: None (occurrence: None)
  Receive Date: 20040312
  Receipt Date: 20040227
  Transmission Date: 20041129
  Serious: Yes (Life-Threatening)
  Sender: FDA-Public Use
  Company Number: 2004AP00770

PATIENT
  Age: 77 Year
  Sex: Male
  Weight: 60 kg

DRUGS (2)
  1. OMEPRAZOLE [Suspect]
     Indication: REFLUX OESOPHAGITIS
     Dosage: 20 MG DAILY PO
     Route: 048
     Dates: start: 20040126, end: 20040206
  2. PREDONINE [Concomitant]

REACTIONS (5)
  - ANOREXIA [None]
  - HYPOXIA [None]
  - INTERSTITIAL LUNG DISEASE [None]
  - PNEUMOCYSTIS CARINII PNEUMONIA [None]
  - PNEUMONIA FUNGAL [None]
